FAERS Safety Report 17531912 (Version 1)
Quarter: 2020Q1

REPORT INFORMATION
  Report Type: Spontaneous
  Country: FR (occurrence: FR)
  Receive Date: 20200312
  Receipt Date: 20200312
  Transmission Date: 20200409
  Serious: Yes (Other)
  Sender: FDA-Public Use
  Company Number: FR-ALK-ABELLO A/S-2020AA000462

PATIENT

DRUGS (3)
  1. GRAZAX [Suspect]
     Active Substance: PHLEUM PRATENSE POLLEN
     Indication: IMMUNE TOLERANCE INDUCTION
     Dosage: UNK
     Route: 060
     Dates: start: 202001
  2. OSIRIS (F615) BETULA PENDULA ROTH [Concomitant]
  3. GRAZAX [Suspect]
     Active Substance: PHLEUM PRATENSE POLLEN
     Dosage: UNK
     Route: 060
     Dates: start: 202001

REACTIONS (8)
  - Use of accessory respiratory muscles [Recovered/Resolved]
  - Asthmatic crisis [Recovered/Resolved]
  - Wheezing [Recovered/Resolved]
  - Hyperhidrosis [Recovered/Resolved]
  - Salivary hypersecretion [Recovered/Resolved]
  - Chest pain [Recovered/Resolved]
  - Dysphonia [Recovered/Resolved]
  - Sense of oppression [Recovered/Resolved]

NARRATIVE: CASE EVENT DATE: 20200205
